FAERS Safety Report 7880669-X (Version None)
Quarter: 2011Q4

REPORT INFORMATION
  Report Type: 
  Country: None (occurrence: None)
  Receive Date: 20111101
  Receipt Date: 20111024
  Transmission Date: 20120403
  Serious: Yes (Hospitalization, Other)
  Sender: FDA-Public Use
  Company Number: GXBR2011US04930

PATIENT
  Sex: Female

DRUGS (1)
  1. ASCRIPTIN - UNKNOWN FORMULA [Suspect]
     Dosage: UNK MG, UNK

REACTIONS (2)
  - CEREBROVASCULAR ACCIDENT [None]
  - ENCEPHALITIS [None]
